FAERS Safety Report 16237287 (Version 5)
Quarter: 2019Q3

REPORT INFORMATION
  Report Type: Spontaneous
  Country: FI (occurrence: FI)
  Receive Date: 20190425
  Receipt Date: 20190909
  Transmission Date: 20191004
  Serious: Yes (Other)
  Sender: FDA-Public Use
  Company Number: FI-BAYER-2019-074836

PATIENT
  Age: 39 Year
  Sex: Female

DRUGS (1)
  1. AVELOX [Suspect]
     Active Substance: MOXIFLOXACIN HYDROCHLORIDE
     Indication: BRONCHITIS
     Dosage: UNK
     Dates: start: 20180129, end: 20180130

REACTIONS (56)
  - Hypotension [None]
  - Eye pain [None]
  - Mood altered [None]
  - Impaired work ability [None]
  - Decreased activity [None]
  - Coordination abnormal [None]
  - Hallucination [Recovered/Resolved]
  - Vertigo [None]
  - Arrhythmia [None]
  - Nausea [None]
  - Headache [None]
  - Apathy [None]
  - Obsessive-compulsive disorder [None]
  - Palpitations [None]
  - Autonomic nervous system imbalance [None]
  - Visual impairment [None]
  - Panic attack [None]
  - Feeling abnormal [None]
  - Dizziness [None]
  - Cervicobrachial syndrome [None]
  - Decreased appetite [None]
  - Middle insomnia [None]
  - Depressed level of consciousness [None]
  - Dyspnoea [None]
  - Blindness unilateral [None]
  - Nervous system disorder [None]
  - Epilepsy [None]
  - Tremor [None]
  - Depressive symptom [None]
  - Depressed mood [None]
  - Fatigue [None]
  - Confusional state [None]
  - Stress [None]
  - Tension [None]
  - Muscle tightness [None]
  - Major depression [None]
  - Anger [None]
  - Tinnitus [None]
  - Heart rate increased [None]
  - Performance status decreased [None]
  - Chest discomfort [None]
  - Fear [None]
  - Anxiety [None]
  - Weight decreased [None]
  - Tearfulness [None]
  - Post-traumatic stress disorder [None]
  - Vision blurred [None]
  - Memory impairment [None]
  - Amnesia [None]
  - Agitation [None]
  - Speech disorder [None]
  - Cognitive disorder [None]
  - Myalgia [None]
  - Disturbance in attention [None]
  - Asthenopia [None]
  - Dysgeusia [None]

NARRATIVE: CASE EVENT DATE: 20180203
